FAERS Safety Report 21569756 (Version 1)
Quarter: 2022Q4

REPORT INFORMATION
  Report Type: Report from Study
  Country: US (occurrence: US)
  Receive Date: 20221109
  Receipt Date: 20221109
  Transmission Date: 20230113
  Serious: Yes (Hospitalization, Other)
  Sender: FDA-Public Use
  Company Number: US-ABBVIE-4190316

PATIENT
  Sex: Female

DRUGS (1)
  1. RINVOQ [Suspect]
     Active Substance: UPADACITINIB
     Indication: Rheumatoid arthritis
     Dosage: FORM STRENGTH: 15 MILLIGRAM
     Route: 048

REACTIONS (6)
  - Fall [Unknown]
  - Rheumatoid arthritis [Unknown]
  - Arthralgia [Recovered/Resolved]
  - Shoulder arthroplasty [Unknown]
  - Pain [Recovered/Resolved]
  - Paralysis [Unknown]

NARRATIVE: CASE EVENT DATE: 20220101
